FAERS Safety Report 5320091-3 (Version None)
Quarter: 2007Q1

REPORT INFORMATION
  Report Type: 
  Country: None (occurrence: None)
  Receive Date: 20070215
  Receipt Date: 20060112
  Transmission Date: 20070707
  Serious: Yes (Hospitalization)
  Sender: FDA-Public Use
  Company Number: MC200600043

PATIENT
  Age: 73 Year
  Sex: Female
  Weight: 52 kg

DRUGS (5)
  1. ANGIOMAX [Suspect]
     Dosage: 33 ML, HR (5 MG/ML), INTRAVENOUS
     Route: 042
     Dates: start: 20051031, end: 20051031
  2. HEPARIN [Suspect]
     Dosage: 1000 IU, HR
     Dates: end: 20051031
  3. ASPIRIN [Concomitant]
     Dates: end: 20051101
  4. PLAVIX [Suspect]
     Dates: end: 20051101
  5. RETEVASE [Suspect]
     Dates: end: 20051031

REACTIONS (1)
  - SUBARACHNOID HAEMORRHAGE [None]
